FAERS Safety Report 12791472 (Version 3)
Quarter: 2016Q4

REPORT INFORMATION
  Report Type: Spontaneous
  Country: DE (occurrence: DE)
  Receive Date: 20160929
  Receipt Date: 20161129
  Transmission Date: 20170207
  Serious: Yes (Hospitalization)
  Sender: FDA-Public Use
  Company Number: DE-ASTRAZENECA-2016SF02232

PATIENT
  Sex: Male
  Weight: 77 kg

DRUGS (1)
  1. DAXAS [Suspect]
     Active Substance: ROFLUMILAST
     Indication: CHRONIC OBSTRUCTIVE PULMONARY DISEASE
     Route: 048

REACTIONS (7)
  - Diarrhoea [Recovered/Resolved]
  - Feeding disorder [Unknown]
  - Rhinorrhoea [Unknown]
  - Cough [Unknown]
  - Chest discomfort [Unknown]
  - Migraine [Unknown]
  - Nasopharyngitis [Unknown]
